FAERS Safety Report 16754835 (Version 1)
Quarter: 2019Q3

REPORT INFORMATION
  Report Type: Spontaneous
  Country: US (occurrence: US)
  Receive Date: 20190710
  Receipt Date: 20190710
  Transmission Date: 20191005
  Serious: Yes (Death, Hospitalization)
  Sender: FDA-Public Use
  Company Number: None

PATIENT
  Age: 59 Year
  Sex: Male

DRUGS (15)
  1. ATORVASTATIN [Concomitant]
     Active Substance: ATORVASTATIN
  2. ASPIRIN. [Concomitant]
     Active Substance: ASPIRIN
  3. FULL SPECTRUM B-VITAMIN C [Concomitant]
  4. FLONASE [Concomitant]
     Active Substance: FLUTICASONE PROPIONATE
  5. VITAMIN D3 [Concomitant]
     Active Substance: CHOLECALCIFEROL
  6. KEPPRA [Concomitant]
     Active Substance: LEVETIRACETAM
  7. QVAR [Concomitant]
     Active Substance: BECLOMETHASONE DIPROPIONATE
  8. SILDENAFIL. [Concomitant]
     Active Substance: SILDENAFIL
  9. FOLIC ACID. [Concomitant]
     Active Substance: FOLIC ACID
  10. SALINE NASAL SPRAY [Concomitant]
     Active Substance: SODIUM CHLORIDE
  11. METOPROLOL. [Concomitant]
     Active Substance: METOPROLOL
  12. PANTOPRAZOLE [Concomitant]
     Active Substance: PANTOPRAZOLE
  13. LETAIRIS [Suspect]
     Active Substance: AMBRISENTAN
     Indication: HEART DISEASE CONGENITAL
     Route: 048
     Dates: start: 201802, end: 201907
  14. BENZONATATE. [Concomitant]
     Active Substance: BENZONATATE
  15. MIDODRINE [Concomitant]
     Active Substance: MIDODRINE

REACTIONS (9)
  - Confusional state [None]
  - Wound [None]
  - Hypotension [None]
  - Heart rate decreased [None]
  - Haemodialysis [None]
  - Atrial fibrillation [None]
  - Haemodynamic instability [None]
  - Hypoglycaemia [None]
  - Pulseless electrical activity [None]

NARRATIVE: CASE EVENT DATE: 20190708
